APPROVED DRUG PRODUCT: DOPAMINE HYDROCHLORIDE
Active Ingredient: DOPAMINE HYDROCHLORIDE
Strength: 160MG/ML
Dosage Form/Route: INJECTABLE;INJECTION
Application: A070092 | Product #001
Applicant: IGI LABORATORIES INC
Approved: Oct 23, 1985 | RLD: No | RS: No | Type: DISCN